FAERS Safety Report 23205855 (Version 1)
Quarter: 2023Q4

REPORT INFORMATION
  Report Type: Spontaneous
  Country: US (occurrence: US)
  Receive Date: 20231120
  Receipt Date: 20231120
  Transmission Date: 20240109
  Serious: No
  Sender: FDA-Public Use
  Company Number: US-JNJFOC-20231138792

PATIENT
  Age: 25 Year
  Sex: Male
  Weight: 68.1 kg

DRUGS (4)
  1. CONCERTA [Suspect]
     Active Substance: METHYLPHENIDATE HYDROCHLORIDE
     Indication: Product used for unknown indication
     Route: 048
  2. BUPROPION [Concomitant]
     Active Substance: BUPROPION
     Indication: Product used for unknown indication
     Route: 065
  3. LAMICTAL [Concomitant]
     Active Substance: LAMOTRIGINE
     Indication: Product used for unknown indication
     Route: 065
  4. DEXTROAMPHETAMINE [Concomitant]
     Active Substance: DEXTROAMPHETAMINE
     Indication: Product used for unknown indication
     Route: 065

REACTIONS (2)
  - Overdose [Unknown]
  - Wrong technique in product usage process [Unknown]
